FAERS Safety Report 7931033-6 (Version None)
Quarter: 2011Q4

REPORT INFORMATION
  Report Type: 
  Country: None (occurrence: None)
  Receive Date: 20111121
  Receipt Date: 20111118
  Transmission Date: 20120403
  Serious: Yes (Death, Other)
  Sender: FDA-Public Use
  Company Number: PHHY2011IT101090

PATIENT
  Sex: Male

DRUGS (2)
  1. PACLITAXEL [Suspect]
     Dosage: UNK UKN, UNK
  2. CARBOPLATIN [Suspect]
     Dosage: UNK UKN, UNK

REACTIONS (4)
  - BRONCHOPNEUMONIA [None]
  - HYPERPYREXIA [None]
  - FEBRILE NEUTROPENIA [None]
  - DEATH [None]
